FAERS Safety Report 21169411 (Version 1)
Quarter: 2022Q3

REPORT INFORMATION
  Report Type: Spontaneous
  Country: IT (occurrence: IT)
  Receive Date: 20220804
  Receipt Date: 20220804
  Transmission Date: 20221027
  Serious: Yes (Hospitalization, Other)
  Sender: FDA-Public Use
  Company Number: None

PATIENT
  Age: 49 Year
  Sex: Male

DRUGS (3)
  1. KETOPROFEN [Interacting]
     Active Substance: KETOPROFEN
     Indication: Headache
     Dosage: KETOPROFENE, UNIT DOSE : 2 DF , FREQUENCY TIME : 24 HOURS  , DURATION : 3 DAYS
     Route: 065
     Dates: start: 20220402, end: 20220405
  2. NAPROXEN SODIUM [Suspect]
     Active Substance: NAPROXEN SODIUM
     Indication: Headache
     Dosage: UNIT DOSE : 3 DF  , FREQUENCY TIME : 24 HOURS   , DURATION : 3 DAYS
     Dates: start: 20220402, end: 20220405
  3. MAGNESIUM HYDROXIDE + ALUMINUM OXIDE HYDRATE [Concomitant]
     Indication: Abdominal pain upper
     Dosage: MAGNESIO IDROSSIDO + ALLUMINIO OSSIDO IDRATO

REACTIONS (6)
  - Abdominal pain upper [Unknown]
  - Melaena [Unknown]
  - Drug interaction [Unknown]
  - Dizziness [Unknown]
  - Peptic ulcer haemorrhage [Unknown]
  - Loss of consciousness [Unknown]

NARRATIVE: CASE EVENT DATE: 20220403
